FAERS Safety Report 8801785 (Version 3)
Quarter: 2012Q4

REPORT INFORMATION
  Report Type: 
  Country: BR (occurrence: BR)
  Receive Date: 20120921
  Receipt Date: 20121227
  Transmission Date: 20130627
  Serious: Yes (Hospitalization, Other)
  Sender: FDA-Public Use
  Company Number: BR-ABBOTT-12P-020-0979075-00

PATIENT
  Sex: Female
  Weight: 74 kg

DRUGS (5)
  1. SYNTHROID [Suspect]
     Indication: HORMONE REPLACEMENT THERAPY
     Dosage: 1 Tablet daily
     Route: 048
     Dates: start: 199903
  2. SYNTHROID [Suspect]
     Indication: HYPOTHYROIDISM
  3. VERTIZINE D [Suspect]
     Indication: LABYRINTHITIS
     Dosage: Every 12 hours (as needed)
     Route: 048
     Dates: start: 2009
  4. METFORMIN [Suspect]
     Indication: DIABETES MELLITUS
     Dates: start: 201203
  5. LIPISTAT [Concomitant]
     Indication: BLOOD CHOLESTEROL INCREASED

REACTIONS (39)
  - Syncope [Recovering/Resolving]
  - Angina pectoris [Unknown]
  - Deafness [Recovering/Resolving]
  - Chest pain [Unknown]
  - Syncope [Recovering/Resolving]
  - Weight decreased [Unknown]
  - Asthenia [Unknown]
  - Syncope [Unknown]
  - Asthenia [Unknown]
  - Self esteem decreased [Recovering/Resolving]
  - Ear pain [Recovering/Resolving]
  - Nasopharyngitis [Recovering/Resolving]
  - Amnesia [Recovering/Resolving]
  - Pallor [Recovering/Resolving]
  - Depressed mood [Recovering/Resolving]
  - Hypokinesia [Recovering/Resolving]
  - Skin burning sensation [Recovering/Resolving]
  - Feeling cold [Recovering/Resolving]
  - Dry skin [Recovering/Resolving]
  - Skin fissures [Recovering/Resolving]
  - Pain in extremity [Recovering/Resolving]
  - Muscle spasms [Recovering/Resolving]
  - Arthralgia [Recovering/Resolving]
  - Onychoclasis [Recovering/Resolving]
  - Chest pain [Recovering/Resolving]
  - Hypertension [Recovering/Resolving]
  - Meniere^s disease [Unknown]
  - Weight increased [Recovered/Resolved]
  - Diabetes mellitus [Unknown]
  - Nausea [Unknown]
  - Fatigue [Unknown]
  - Hyperhidrosis [Unknown]
  - Chest pain [Unknown]
  - Pain in extremity [Unknown]
  - Incontinence [Unknown]
  - Weight decreased [Unknown]
  - Vomiting [Unknown]
  - Diabetes mellitus inadequate control [Unknown]
  - Arterial occlusive disease [Unknown]
